FAERS Safety Report 20533283 (Version 1)
Quarter: 2022Q1

REPORT INFORMATION
  Report Type: Report from Study
  Country: MX (occurrence: MX)
  Receive Date: 20220301
  Receipt Date: 20220301
  Transmission Date: 20220424
  Serious: Yes (Death, Other)
  Sender: FDA-Public Use
  Company Number: MX-BRISTOL-MYERS SQUIBB COMPANY-BMS-2022-030278

PATIENT
  Age: 75 Year
  Sex: Male
  Weight: 59 kg

DRUGS (1)
  1. NIVOLUMAB [Suspect]
     Active Substance: NIVOLUMAB
     Indication: Renal cancer
     Dosage: 240 MILLIGRAMS EVERY 30 DAYS
     Route: 042
     Dates: start: 20210910, end: 20220121

REACTIONS (2)
  - Brain neoplasm [Fatal]
  - Off label use [Unknown]

NARRATIVE: CASE EVENT DATE: 20220121
